FAERS Safety Report 6994060-1 (Version None)
Quarter: 2010Q3

REPORT INFORMATION
  Report Type: 
  Country: None (occurrence: None)
  Receive Date: 20100917
  Receipt Date: 20100909
  Transmission Date: 20110219
  Serious: Yes (Other)
  Sender: FDA-Public Use
  Company Number: GB-ABBOTT-10P-167-0651987-00

PATIENT
  Age: 25 Year
  Sex: Female

DRUGS (2)
  1. HUMIRA [Suspect]
     Indication: CROHN'S DISEASE
     Dates: start: 20100419, end: 20100615
  2. LOPERAMIDE [Concomitant]
     Indication: DIARRHOEA

REACTIONS (10)
  - ADVERSE EVENT [None]
  - ANXIETY [None]
  - DEPRESSED MOOD [None]
  - DIARRHOEA [None]
  - ECZEMA [None]
  - ECZEMA INFECTED [None]
  - EYE DISORDER [None]
  - EYE PAIN [None]
  - FOOD INTOLERANCE [None]
  - SKIN DISORDER [None]
